FAERS Safety Report 9397690 (Version 2)
Quarter: 2013Q3

REPORT INFORMATION
  Report Type: Report from Study
  Country: ES (occurrence: ES)
  Receive Date: 20130712
  Receipt Date: 20130715
  Transmission Date: 20140515
  Serious: Yes (Death)
  Sender: FDA-Public Use
  Company Number: ES-BAYER-2013-082105

PATIENT
  Age: 88 Year
  Sex: Female

DRUGS (1)
  1. ADIRO 100 MG COMPRIMIDOS GASTRORRESISTENTES EFG, 60 COMPRIMIDOS [Suspect]
     Indication: ATRIAL FIBRILLATION
     Dosage: 100 MG, QD
     Route: 048
     Dates: start: 201208, end: 20130610

REACTIONS (2)
  - Subarachnoid haemorrhage [Fatal]
  - Subdural haematoma [Fatal]
